FAERS Safety Report 11279347 (Version 2)
Quarter: 2015Q3

REPORT INFORMATION
  Report Type: Spontaneous
  Country: FR (occurrence: FR)
  Receive Date: 20150717
  Receipt Date: 20150814
  Transmission Date: 20151125
  Serious: Yes (Hospitalization)
  Sender: FDA-Public Use
  Company Number: FR-PFIZER INC-2015230309

PATIENT
  Age: 77 Year
  Sex: Female

DRUGS (8)
  1. EFFEXOR LP [Suspect]
     Active Substance: VENLAFAXINE HYDROCHLORIDE
     Dosage: 37.5 MG IN THE EVENING
     Route: 048
     Dates: start: 20150626
  2. KARDEGIC [Suspect]
     Active Substance: ASPIRIN LYSINE
     Dosage: UNK
     Route: 048
     Dates: end: 20150625
  3. FORLAX [Concomitant]
     Active Substance: POLYETHYLENE GLYCOL 4000
     Dosage: UNK
  4. LEVOTHYROX [Concomitant]
     Active Substance: LEVOTHYROXINE
     Dosage: UNK
  5. EFFEXOR LP [Suspect]
     Active Substance: VENLAFAXINE HYDROCHLORIDE
     Dosage: 75 MG, 2X/DAY
     Route: 048
     Dates: start: 20150601, end: 20150625
  6. TIAPRIDAL [Suspect]
     Active Substance: TIAPRIDE HYDROCHLORIDE
     Dosage: 50 MG (0.5 DF OF 100 MG), 1X/DAY
     Route: 048
     Dates: start: 20150619, end: 20150625
  7. PARACETAMOL BIOGARAN [Concomitant]
     Active Substance: ACETAMINOPHEN
     Dosage: UNK
  8. ZOLPIDEM TARTRATE. [Concomitant]
     Active Substance: ZOLPIDEM TARTRATE
     Dosage: UNK

REACTIONS (7)
  - Red blood cell count decreased [Recovered/Resolved]
  - Anaemia [Recovered/Resolved]
  - Restlessness [Recovered/Resolved]
  - Agitation [Recovered/Resolved]
  - Disorientation [Recovered/Resolved]
  - Haematoma [Recovered/Resolved]
  - Fall [Recovered/Resolved]

NARRATIVE: CASE EVENT DATE: 20150619
